FAERS Safety Report 9610112 (Version 2)
Quarter: 2013Q4

REPORT INFORMATION
  Report Type: Spontaneous
  Country: US (occurrence: US)
  Receive Date: 20131009
  Receipt Date: 20131009
  Transmission Date: 20140711
  Serious: No
  Sender: FDA-Public Use
  Company Number: US-PURDUE-USA-2012-0095614

PATIENT
  Sex: Male

DRUGS (2)
  1. BUTRANS [Suspect]
     Indication: ANALGESIC THERAPY
     Dosage: 5 MCG, UNK
     Route: 062
  2. ALEVE [Concomitant]
     Indication: ANALGESIC THERAPY

REACTIONS (2)
  - Dermatitis contact [Recovered/Resolved]
  - Drug ineffective [Recovered/Resolved]
